FAERS Safety Report 4683463-6 (Version None)
Quarter: 2005Q2

REPORT INFORMATION
  Report Type: 
  Country: None (occurrence: None)
  Receive Date: 20050602
  Receipt Date: 20050414
  Transmission Date: 20051028
  Serious: No
  Sender: FDA-Public Use
  Company Number: 200510756BWH

PATIENT
  Age: 62 Year
  Sex: Male

DRUGS (8)
  1. LEVITRA [Suspect]
     Indication: ERECTILE DYSFUNCTION
     Dosage: 10 MG, TOTAL DAILY, ORAL
     Route: 048
  2. DETROL [Concomitant]
  3. SINEMET [Concomitant]
  4. FLORINEF [Concomitant]
  5. COMTAN [Concomitant]
  6. PROAMATINE [Concomitant]
  7. VIAGRA [Concomitant]
  8. CIALIS [Concomitant]

REACTIONS (3)
  - BLOOD PRESSURE DECREASED [None]
  - DIZZINESS [None]
  - HYPOTENSION [None]
